FAERS Safety Report 13829680 (Version 1)
Quarter: 2017Q3

REPORT INFORMATION
  Report Type: Spontaneous
  Country: NL (occurrence: NL)
  Receive Date: 20170803
  Receipt Date: 20170803
  Transmission Date: 20171127
  Serious: Yes (Life-Threatening, Hospitalization, Other)
  Sender: FDA-Public Use
  Company Number: NL-BAYER-2017-146321

PATIENT
  Age: 71 Year
  Sex: Male

DRUGS (2)
  1. ACETYLSALICYLIC ACID({=100 MG) [Suspect]
     Active Substance: ASPIRIN
     Indication: ANTICOAGULANT THERAPY
     Dosage: UNK
  2. DIPYRIDAMOLE. [Interacting]
     Active Substance: DIPYRIDAMOLE
     Indication: ANTICOAGULANT THERAPY

REACTIONS (7)
  - Splenic injury [Recovered/Resolved]
  - Peritoneal haematoma [Recovered/Resolved]
  - Intra-abdominal haemorrhage [Recovered/Resolved]
  - Shock haemorrhagic [Recovered/Resolved]
  - Peritonitis [Recovered/Resolved]
  - Drug administration error [Recovered/Resolved]
  - Labelled drug-drug interaction medication error [Recovered/Resolved]
